FAERS Safety Report 15748542 (Version 4)
Quarter: 2019Q2

REPORT INFORMATION
  Report Type: Spontaneous
  Country: DE (occurrence: DE)
  Receive Date: 20181221
  Receipt Date: 20190403
  Transmission Date: 20190711
  Serious: Yes (Life-Threatening, Other)
  Sender: FDA-Public Use
  Company Number: DE-TEVA-2018-DE-989832

PATIENT
  Age: 70 Year
  Sex: Male
  Weight: 72 kg

DRUGS (6)
  1. PANTOPRAZOLE [Interacting]
     Active Substance: PANTOPRAZOLE
     Dosage: UNK
     Route: 065
  2. XARELTO [Interacting]
     Active Substance: RIVAROXABAN
     Route: 065
  3. CLOPIDOGREL [Suspect]
     Active Substance: CLOPIDOGREL BISULFATE
     Route: 065
  4. BISOPROLOL [Concomitant]
     Active Substance: BISOPROLOL
     Indication: HYPERTENSION
     Route: 065
     Dates: start: 20180329
  5. EBRANTIL [URAPIDIL] [Interacting]
     Active Substance: URAPIDIL
     Indication: BLOOD PRESSURE INCREASED
     Dosage: 120 MILLIGRAM DAILY;
     Route: 065
     Dates: start: 20181108, end: 20181113
  6. EBRANTIL [URAPIDIL] [Interacting]
     Active Substance: URAPIDIL
     Dosage: 60 MILLIGRAM DAILY;
     Route: 065
     Dates: start: 20181031, end: 20181107

REACTIONS (2)
  - Blood pressure increased [Recovered/Resolved]
  - Drug interaction [Unknown]

NARRATIVE: CASE EVENT DATE: 2018
